FAERS Safety Report 14441285 (Version 1)
Quarter: 2018Q1

REPORT INFORMATION
  Report Type: Other
  Country: HK (occurrence: HK)
  Receive Date: 20180125
  Receipt Date: 20180125
  Transmission Date: 20180509
  Serious: Yes (Other)
  Sender: FDA-Public Use
  Company Number: HK-ACIC FINE CHEMICALS INC-2040810

PATIENT
  Age: 50 Year
  Sex: Female

DRUGS (1)
  1. TRANEXAMIC ACID. [Suspect]
     Active Substance: TRANEXAMIC ACID
     Indication: HAEMORRHAGE

REACTIONS (2)
  - Muscle twitching [Recovered/Resolved]
  - Generalised tonic-clonic seizure [Recovered/Resolved]
